FAERS Safety Report 7397063-0 (Version None)
Quarter: 2011Q2

REPORT INFORMATION
  Report Type: 
  Country: None (occurrence: None)
  Receive Date: 20110406
  Receipt Date: 20110329
  Transmission Date: 20111010
  Serious: Yes (Hospitalization)
  Sender: FDA-Public Use
  Company Number: A0773149A

PATIENT
  Age: 45 Year
  Sex: Female
  Weight: 109.1 kg

DRUGS (4)
  1. AVANDIA [Suspect]
     Indication: DIABETES MELLITUS
     Dosage: 8MG PER DAY
     Route: 048
     Dates: start: 20010720, end: 20041001
  2. AMBIEN [Concomitant]
  3. ZOLPIDEM [Concomitant]
  4. IRON [Concomitant]

REACTIONS (5)
  - SUPRAVENTRICULAR TACHYCARDIA [None]
  - ANGINA PECTORIS [None]
  - CORONARY ARTERY DISEASE [None]
  - MYOCARDIAL INFARCTION [None]
  - CARDIAC FAILURE CONGESTIVE [None]
